FAERS Safety Report 8294765 (Version 7)
Quarter: 2013Q4

REPORT INFORMATION
  Report Type: Report from Study
  Country: US (occurrence: US)
  Receive Date: 20111216
  Receipt Date: 20131031
  Transmission Date: 20140711
  Serious: Yes (Hospitalization, Other)
  Sender: FDA-Public Use
  Company Number: US-ROCHE-1019556

PATIENT
  Age: 32 Year
  Sex: Female

DRUGS (17)
  1. OMALIZUMAB [Suspect]
     Indication: ASTHMA
     Dosage: /AUG/2012 LAST DOSE 225 MG PRIOR TO ONSET OF EVENT, LAST DOSE PRIOR TO ON SET OF EVENT:  01/SEP/2012
     Route: 058
     Dates: start: 200804
  2. OMALIZUMAB [Suspect]
     Route: 058
     Dates: start: 20111026
  3. OMALIZUMAB [Suspect]
     Route: 065
     Dates: start: 20111213
  4. OMALIZUMAB [Suspect]
     Route: 065
     Dates: start: 20120103
  5. OMALIZUMAB [Suspect]
     Route: 065
     Dates: start: 20120119
  6. OMALIZUMAB [Suspect]
     Route: 065
     Dates: start: 20120202
  7. OMALIZUMAB [Suspect]
     Route: 065
     Dates: start: 200804
  8. OMALIZUMAB [Suspect]
     Route: 065
     Dates: start: 20120901
  9. ZYFLO [Concomitant]
     Indication: ASTHMA
  10. ADVAIR [Concomitant]
     Indication: ASTHMA
     Route: 065
  11. FLOVENT [Concomitant]
     Indication: ASTHMA
     Route: 065
  12. SINGULAIR [Concomitant]
     Indication: ASTHMA
     Route: 048
  13. ALBUTEROL [Concomitant]
     Indication: ASTHMA
     Route: 065
  14. VITAMIN B12 [Concomitant]
     Route: 048
  15. PREDNISONE [Concomitant]
     Indication: ASTHMA
     Route: 048
  16. PEROCEF [Concomitant]
     Route: 048
     Dates: start: 20120204, end: 20120217
  17. IBUPROFEN [Concomitant]
     Route: 048
     Dates: start: 20120204

REACTIONS (9)
  - Wound dehiscence [Recovered/Resolved]
  - Menorrhagia [Recovered/Resolved]
  - Nausea [Unknown]
  - Urticaria [Recovered/Resolved]
  - Asthma [Unknown]
  - Seroma [Recovered/Resolved]
  - Asthma [Recovered/Resolved]
  - Exposure during pregnancy [Unknown]
  - Anaemia [Unknown]
